FAERS Safety Report 15454833 (Version 5)
Quarter: 2018Q4

REPORT INFORMATION
  Report Type: Report from Study
  Country: US (occurrence: US)
  Receive Date: 20181002
  Receipt Date: 20181126
  Transmission Date: 20190204
  Serious: Yes (Other)
  Sender: FDA-Public Use
  Company Number: US-ROCHE-2190235

PATIENT
  Sex: Female

DRUGS (1)
  1. OCREVUS [Suspect]
     Active Substance: OCRELIZUMAB
     Indication: MULTIPLE SCLEROSIS
     Route: 042
     Dates: start: 20170825

REACTIONS (5)
  - Escherichia urinary tract infection [Unknown]
  - Gait disturbance [Unknown]
  - Infection [Not Recovered/Not Resolved]
  - Therapeutic response decreased [Unknown]
  - White blood cell count increased [Unknown]
